FAERS Safety Report 16374614 (Version 4)
Quarter: 2019Q3

REPORT INFORMATION
  Report Type: Report from Study
  Country: DE (occurrence: DE)
  Receive Date: 20190530
  Receipt Date: 20190920
  Transmission Date: 20191004
  Serious: Yes (Hospitalization)
  Sender: FDA-Public Use
  Company Number: PHHY2018DE184006

PATIENT
  Sex: Female
  Weight: 76 kg

DRUGS (19)
  1. COSENTYX [Suspect]
     Active Substance: SECUKINUMAB
     Dosage: 150 MG, UNK (PER APPLICATION)
     Route: 065
     Dates: start: 20180508
  2. COSENTYX [Suspect]
     Active Substance: SECUKINUMAB
     Dosage: 150 MG, (PER APPLICATION)
     Route: 065
     Dates: start: 20180925
  3. COSENTYX [Suspect]
     Active Substance: SECUKINUMAB
     Indication: ANKYLOSING SPONDYLITIS
     Dosage: 150 MG, UNK (PER APPLICATION)
     Route: 065
     Dates: start: 20180417
  4. COSENTYX [Suspect]
     Active Substance: SECUKINUMAB
     Dosage: 150 MG, UNK (PER APPLICATION)
     Route: 065
     Dates: start: 20180501
  5. COSENTYX [Suspect]
     Active Substance: SECUKINUMAB
     Dosage: 150 MG, (PER APPLICATION)
     Route: 065
     Dates: start: 20180814
  6. COSENTYX [Suspect]
     Active Substance: SECUKINUMAB
     Dosage: 150 MG, (PER APPLICATION)
     Route: 065
     Dates: start: 20181023
  7. COSENTYX [Suspect]
     Active Substance: SECUKINUMAB
     Dosage: 150 MG, (PER APPLICATION) (PREFILLED SYRINGE)
     Route: 065
     Dates: start: 20181210
  8. COSENTYX [Suspect]
     Active Substance: SECUKINUMAB
     Dosage: 150 MG, (PER APPLICATION) (PREFILLED SYRINGE)
     Route: 065
     Dates: start: 20190109
  9. COSENTYX [Suspect]
     Active Substance: SECUKINUMAB
     Dosage: 150 MG, (PER APPLICATION)
     Route: 065
     Dates: start: 20180718
  10. COSENTYX [Suspect]
     Active Substance: SECUKINUMAB
     Dosage: 150 MG, (PER APPLICATION) (PREFILLED SYRINGE)
     Route: 065
     Dates: start: 20190605
  11. COSENTYX [Suspect]
     Active Substance: SECUKINUMAB
     Dosage: 150 MG, UNK (PER APPLICATION)
     Route: 065
     Dates: start: 20180424
  12. COSENTYX [Suspect]
     Active Substance: SECUKINUMAB
     Dosage: 150 MG, (PER APPLICATION)
     Route: 065
     Dates: start: 20180619
  13. COSENTYX [Suspect]
     Active Substance: SECUKINUMAB
     Dosage: 150 MG, (PER APPLICATION) (PREFILLED SYRINGE)
     Route: 065
     Dates: start: 20190214
  14. COSENTYX [Suspect]
     Active Substance: SECUKINUMAB
     Dosage: 150 MG, (PER APPLICATION) (PREFILLED SYRINGE)
     Route: 065
     Dates: start: 20190313
  15. COSENTYX [Suspect]
     Active Substance: SECUKINUMAB
     Dosage: 150 MG, (PER APPLICATION) (PREFILLED SYRINGE)
     Route: 065
     Dates: start: 20190508
  16. COSENTYX [Suspect]
     Active Substance: SECUKINUMAB
     Dosage: UNK
     Route: 065
     Dates: start: 20181123
  17. COSENTYX [Suspect]
     Active Substance: SECUKINUMAB
     Dosage: 150 MG, (PER APPLICATION) (PREFILLED SYRINGE)
     Route: 065
     Dates: start: 20190410
  18. COSENTYX [Suspect]
     Active Substance: SECUKINUMAB
     Dosage: 150 MG, UNK (PER APPLICATION)
     Route: 065
     Dates: start: 20180522
  19. DEKRISTOL [Concomitant]
     Active Substance: CHOLECALCIFEROL
     Indication: OSTEOPOROSIS PROPHYLAXIS
     Dosage: 20000 IU, Q2W
     Route: 048
     Dates: start: 20180905

REACTIONS (5)
  - Tonsillitis [Recovered/Resolved]
  - Neck pain [Recovered/Resolved]
  - Nasal turbinate hypertrophy [Recovered/Resolved]
  - Dyspnoea [Recovered/Resolved]
  - Otitis media acute [Recovered/Resolved]

NARRATIVE: CASE EVENT DATE: 20180827
